FAERS Safety Report 9499421 (Version 1)
Quarter: 2013Q1

REPORT INFORMATION
  Report Type: Spontaneous
  Country: US (occurrence: None)
  Receive Date: 20130107
  Receipt Date: 20130107
  Transmission Date: 20140127
  Serious: No
  Sender: FDA-Public Use
  Company Number: PHEH2012US017656

PATIENT
  Sex: Female

DRUGS (1)
  1. GILENYA (FTY) CAPSULE, 0.5MG [Suspect]
     Indication: MULTIPLE SCLEROSIS
     Route: 048
     Dates: start: 201011

REACTIONS (10)
  - Peripheral coldness [None]
  - Fall [None]
  - Sinusitis [None]
  - Urinary tract infection [None]
  - Pyrexia [None]
  - Malaise [None]
  - Multiple sclerosis relapse [None]
  - Asthenia [None]
  - Muscular weakness [None]
  - Amnesia [None]
